FAERS Safety Report 19802781 (Version 1)
Quarter: 2021Q3

REPORT INFORMATION
  Report Type: Report from Study
  Country: GB (occurrence: GB)
  Receive Date: 20210908
  Receipt Date: 20210908
  Transmission Date: 20211014
  Serious: Yes (Other)
  Sender: FDA-Public Use
  Company Number: GB-SUN PHARMACEUTICAL INDUSTRIES LTD-2021RR-310388

PATIENT
  Age: 8 Decade
  Sex: Male

DRUGS (3)
  1. CLOBAZAM. [Suspect]
     Active Substance: CLOBAZAM
     Indication: SEIZURE
     Dosage: 10 MILLIGRAM, NOCTE
     Route: 065
  2. BRIVARACETAM [Suspect]
     Active Substance: BRIVARACETAM
     Indication: SEIZURE
     Dosage: 100 MILLIGRAM, BID
     Route: 048
  3. LEVETIRACETAM. [Suspect]
     Active Substance: LEVETIRACETAM
     Indication: SEIZURE
     Dosage: 1 GRAM, BID
     Route: 065

REACTIONS (3)
  - Drug ineffective [Unknown]
  - Paranoia [Unknown]
  - Agitation [Unknown]
